FAERS Safety Report 10757986 (Version 1)
Quarter: 2015Q1

REPORT INFORMATION
  Report Type: Spontaneous
  Country: US (occurrence: US)
  Receive Date: 20150203
  Receipt Date: 20150203
  Transmission Date: 20150721
  Serious: Yes (Other)
  Sender: FDA-Public Use
  Company Number: US-TEVA-465657USA

PATIENT
  Sex: Female

DRUGS (2)
  1. MIRTAZAPINE. [Suspect]
     Active Substance: MIRTAZAPINE
     Indication: DEPRESSION
     Dosage: 30 MILLIGRAM DAILY; 30 MG 1/2 TABLET FOR ONE WEEK THEN INCREASE TO ONE TABLET
     Route: 048
     Dates: start: 201402
  2. MIRTAZAPINE. [Suspect]
     Active Substance: MIRTAZAPINE
     Indication: SLEEP DISORDER

REACTIONS (8)
  - Fear [Unknown]
  - Feeling abnormal [Unknown]
  - Hyperreflexia [Unknown]
  - Heart rate increased [Unknown]
  - Agitation [Unknown]
  - Disorientation [Unknown]
  - Serotonin syndrome [Unknown]
  - Tremor [Unknown]
